FAERS Safety Report 7535881-6 (Version None)
Quarter: 2011Q2

REPORT INFORMATION
  Report Type: 
  Country: None (occurrence: None)
  Receive Date: 20110607
  Receipt Date: 20110607
  Transmission Date: 20111010
  Serious: Yes (Other)
  Sender: FDA-Public Use
  Company Number: None

PATIENT
  Age: 73 Year
  Sex: 0
  Weight: 90.7194 kg

DRUGS (1)
  1. CYMBALTA [Suspect]
     Indication: PARKINSON'S DISEASE
     Dosage: 1 DAILY
     Dates: start: 20110510, end: 20110511

REACTIONS (1)
  - CHEST PAIN [None]
